FAERS Safety Report 19809680 (Version 1)
Quarter: 2021Q3

REPORT INFORMATION
  Report Type: Other
  Country: US (occurrence: US)
  Receive Date: 20210908
  Receipt Date: 20210908
  Transmission Date: 20211014
  Serious: No
  Sender: FDA-Public Use
  Company Number: US-ROCHE-2797872

PATIENT
  Age: 17 Year
  Sex: Male

DRUGS (5)
  1. ETOPOSIDE. [Concomitant]
     Active Substance: ETOPOSIDE
     Indication: INFLAMMATORY MYOFIBROBLASTIC TUMOUR
  2. ENTRECTINIB [Concomitant]
     Active Substance: ENTRECTINIB
     Indication: INFLAMMATORY MYOFIBROBLASTIC TUMOUR
  3. ALECTINIB. [Suspect]
     Active Substance: ALECTINIB
     Indication: INFLAMMATORY MYOFIBROBLASTIC TUMOUR
     Route: 048
  4. IFOSFAMIDE. [Concomitant]
     Active Substance: IFOSFAMIDE
     Indication: INFLAMMATORY MYOFIBROBLASTIC TUMOUR
  5. CYCLOPHOSPHAMIDE. [Concomitant]
     Active Substance: CYCLOPHOSPHAMIDE
     Indication: INFLAMMATORY MYOFIBROBLASTIC TUMOUR

REACTIONS (1)
  - Rash [Unknown]
